FAERS Safety Report 10692776 (Version 1)
Quarter: 2015Q1

REPORT INFORMATION
  Report Type: Spontaneous
  Country: US (occurrence: None)
  Receive Date: 20150105
  Receipt Date: 20150105
  Transmission Date: 20150720
  Serious: Yes (Hospitalization)
  Sender: FDA-Public Use
  Company Number: None

PATIENT
  Age: 63 Year
  Sex: Male
  Weight: 72.8 kg

DRUGS (2)
  1. WARFARIN [Suspect]
     Active Substance: WARFARIN
     Indication: JOINT ARTHROPLASTY
     Route: 048
     Dates: start: 20141106, end: 20141120
  2. ASPIRIN. [Suspect]
     Active Substance: ASPIRIN
     Route: 048
     Dates: start: 20130114, end: 20141120

REACTIONS (3)
  - Nausea [None]
  - Vomiting [None]
  - Gastric haemorrhage [None]

NARRATIVE: CASE EVENT DATE: 20141120
